FAERS Safety Report 12343567 (Version 2)
Quarter: 2016Q2

REPORT INFORMATION
  Report Type: Spontaneous
  Country: NO (occurrence: NO)
  Receive Date: 20160506
  Receipt Date: 20160526
  Transmission Date: 20160815
  Serious: Yes (Life-Threatening, Hospitalization, Other)
  Sender: FDA-Public Use
  Company Number: NO-ASTRAZENECA-2016SE47130

PATIENT
  Age: 27301 Day
  Sex: Female

DRUGS (2)
  1. XIGDUO XR [Suspect]
     Active Substance: DAPAGLIFLOZIN PROPANEDIOL\METFORMIN HYDROCHLORIDE
     Indication: TYPE 2 DIABETES MELLITUS
     Dosage: 1.0DF UNKNOWN
     Route: 048
     Dates: end: 201602
  2. TOVIAZ [Concomitant]
     Active Substance: FESOTERODINE FUMARATE

REACTIONS (7)
  - Ketoacidosis [Recovering/Resolving]
  - Basedow^s disease [Unknown]
  - Coma [Unknown]
  - Sepsis [Unknown]
  - Cardiac arrest [Unknown]
  - Hypotension [Unknown]
  - Circulatory collapse [Unknown]

NARRATIVE: CASE EVENT DATE: 20160220
